FAERS Safety Report 13118635 (Version 1)
Quarter: 2017Q1

REPORT INFORMATION
  Report Type: Other
  Country: US (occurrence: US)
  Receive Date: 20170116
  Receipt Date: 20170116
  Transmission Date: 20170428
  Serious: Yes (Death)
  Sender: FDA-Public Use
  Company Number: US-LEHIGH_VALLEY-USA-POI0580201700069

PATIENT
  Age: 57 Year
  Sex: Female

DRUGS (8)
  1. LEVOLET (LEVOTHYROXINE) [Suspect]
     Active Substance: LEVOTHYROXINE
     Dates: end: 2015
  2. METOPROLOL. [Suspect]
     Active Substance: METOPROLOL
     Dates: end: 2015
  3. PALIPERIDONE. [Suspect]
     Active Substance: PALIPERIDONE
     Dates: end: 2015
  4. ATORVASTATIN [Suspect]
     Active Substance: ATORVASTATIN
     Dates: end: 2015
  5. METFORMIN [Suspect]
     Active Substance: METFORMIN HYDROCHLORIDE
     Dates: end: 2015
  6. MIRTAZAPINE. [Suspect]
     Active Substance: MIRTAZAPINE
     Dates: end: 2015
  7. GLIPIZIDE. [Suspect]
     Active Substance: GLIPIZIDE
     Dates: end: 2015
  8. VENLAFAXINE [Suspect]
     Active Substance: VENLAFAXINE HYDROCHLORIDE
     Dates: end: 2015

REACTIONS (1)
  - Completed suicide [Fatal]

NARRATIVE: CASE EVENT DATE: 2015
